FAERS Safety Report 8887399 (Version 3)
Quarter: 2013Q2

REPORT INFORMATION
  Report Type: Spontaneous
  Country: US (occurrence: US)
  Receive Date: 20121105
  Receipt Date: 20130418
  Transmission Date: 20140414
  Serious: No
  Sender: FDA-Public Use
  Company Number: US-009507513-1210USA010656

PATIENT
  Age: 35 Year
  Sex: Female
  Weight: 121.54 kg

DRUGS (5)
  1. TEMODAR [Suspect]
     Indication: BRAIN NEOPLASM
     Dosage: 345 MG FOR 5 DAYS, ONCE EVERY 28 DAYS
     Route: 048
     Dates: start: 201111
  2. LEVOTHYROXINE SODIUM [Concomitant]
     Indication: HYPOTHYROIDISM
     Dosage: UNK
     Route: 048
     Dates: start: 2006
  3. TOFRANIL [Concomitant]
     Indication: NAUSEA
     Dosage: UNK
     Route: 048
     Dates: start: 2011
  4. KEPPRA [Concomitant]
     Indication: CONVULSION
     Dosage: UNK
     Route: 048
     Dates: start: 2009
  5. BACTRIM DS [Concomitant]
     Indication: ANTIFUNGAL PROPHYLAXIS
     Dosage: UNK
     Route: 048
     Dates: start: 2012

REACTIONS (1)
  - Hypertension [Not Recovered/Not Resolved]
